FAERS Safety Report 4593946-5 (Version None)
Quarter: 2005Q1

REPORT INFORMATION
  Report Type: 
  Country: None (occurrence: None)
  Receive Date: 20050301
  Receipt Date: 20050224
  Transmission Date: 20050727
  Serious: Yes (Death, Life-Threatening, Hospitalization)
  Sender: FDA-Public Use
  Company Number: US-MERCK-0502USA03221

PATIENT
  Sex: Male

DRUGS (2)
  1. ZOCOR [Suspect]
     Route: 048
     Dates: start: 20040101, end: 20050201
  2. [THERAPY UNSPECIFIED] [Concomitant]
     Route: 065

REACTIONS (2)
  - HEPATIC FAILURE [None]
  - RENAL FAILURE [None]
